FAERS Safety Report 16693797 (Version 1)
Quarter: 2019Q3

REPORT INFORMATION
  Report Type: Spontaneous
  Country: NL (occurrence: PL)
  Receive Date: 20190812
  Receipt Date: 20190812
  Transmission Date: 20191004
  Serious: Yes (Other)
  Sender: FDA-Public Use
  Company Number: PL-FRESENIUS KABI-FK201908619

PATIENT
  Age: 65 Year
  Sex: Male
  Weight: 84 kg

DRUGS (7)
  1. VITALIPID [Suspect]
     Active Substance: ERGOCALCIFEROL\PHYTONADIONE\RETINOL\TOCOPHEROL
     Indication: INTESTINAL OBSTRUCTION
     Dosage: 10ML
     Route: 042
     Dates: start: 20190108, end: 20190121
  2. DIPEPTIVEN [Suspect]
     Active Substance: ALANYL GLUTAMINE
     Indication: INTESTINAL OBSTRUCTION
     Dosage: 100ML
     Route: 065
     Dates: start: 20190108, end: 20190121
  3. CALCIUM GLUCONATE. [Suspect]
     Active Substance: CALCIUM GLUCONATE
     Indication: INTESTINAL OBSTRUCTION
     Dosage: DOSE: 1G/10ML
     Dates: start: 20190108, end: 20190121
  4. ADDAMEL N [Suspect]
     Active Substance: CHROMIC CHLORIDE\CUPROUS CHLORIDE\FERRIC CHLORIDE\MANGANESE CHLORIDE\POTASSIUM IODIDE\SODIUM FLUORIDE\SODIUM MOLYBDATE DIHYDRATE\SODIUM SELENITE\ZINC CHLORIDE
     Indication: INTESTINAL OBSTRUCTION
     Dosage: 10ML
     Route: 042
     Dates: start: 20190108, end: 20190121
  5. POTASSIUM CHLORIDE (MANUFACTURER UNKNOWN) [Suspect]
     Active Substance: POTASSIUM CHLORIDE
     Indication: INTESTINAL OBSTRUCTION
     Dosage: DOSE: 2 MEQ K+/ML
     Route: 042
     Dates: start: 20190107, end: 20190121
  6. SOLUVIT N [Suspect]
     Active Substance: VITAMINS
     Indication: INTESTINAL OBSTRUCTION
     Dosage: 10ML
     Route: 042
     Dates: start: 20190108, end: 20190121
  7. OLIMEL E [Suspect]
     Active Substance: AMINO ACIDS\DEXTROSE\ELECTROLYTES NOS\SOYBEAN OIL
     Indication: INTESTINAL OBSTRUCTION
     Dosage: 1500ML
     Route: 042
     Dates: start: 20190108, end: 20190121

REACTIONS (3)
  - Localised oedema [Recovered/Resolved]
  - Dyspnoea [Recovered/Resolved]
  - Face oedema [Recovered/Resolved]

NARRATIVE: CASE EVENT DATE: 20190121
